FAERS Safety Report 19498937 (Version 3)
Quarter: 2022Q1

REPORT INFORMATION
  Report Type: Spontaneous
  Country: US (occurrence: US)
  Receive Date: 20210706
  Receipt Date: 20220224
  Transmission Date: 20220424
  Serious: No
  Sender: FDA-Public Use
  Company Number: US-SA-SAC20210705000173

PATIENT
  Age: 63 Year
  Sex: Female

DRUGS (2)
  1. KEVZARA [Suspect]
     Active Substance: SARILUMAB
     Indication: Rheumatoid arthritis
     Dosage: 200 MG, QOW
     Route: 058
     Dates: start: 20210527
  2. KEVZARA [Suspect]
     Active Substance: SARILUMAB
     Indication: Torticollis

REACTIONS (7)
  - Eyelid rash [Unknown]
  - Eyelid margin crusting [Unknown]
  - Chest discomfort [Unknown]
  - Back disorder [Unknown]
  - Gastric disorder [Unknown]
  - Stomatitis [Unknown]
  - Product use in unapproved indication [Unknown]

NARRATIVE: CASE EVENT DATE: 20210101
